FAERS Safety Report 5868950-7 (Version None)
Quarter: 2008Q3

REPORT INFORMATION
  Report Type: 
  Country: None (occurrence: None)
  Receive Date: 20080903
  Receipt Date: 20080827
  Transmission Date: 20090109
  Serious: No
  Sender: FDA-Public Use
  Company Number: AR-ROCHE-561744

PATIENT
  Age: 20 Year
  Sex: Female

DRUGS (2)
  1. ROACCUTANE [Suspect]
     Indication: ACNE
     Route: 048
     Dates: start: 20071201, end: 20080218
  2. CURACNE [Suspect]
     Indication: ACNE
     Route: 048
     Dates: start: 20070601, end: 20071201

REACTIONS (2)
  - NO ADVERSE EVENT [None]
  - PREGNANCY [None]
